FAERS Safety Report 9580455 (Version 1)
Quarter: 2013Q3

REPORT INFORMATION
  Report Type: Spontaneous
  Country: US (occurrence: None)
  Receive Date: 20130916
  Receipt Date: 20130916
  Transmission Date: 20140515
  Serious: Yes (Other)
  Sender: FDA-Public Use
  Company Number: JPI-P-023502

PATIENT
  Age: 65 Year
  Sex: Female
  Weight: 61.24 kg

DRUGS (9)
  1. XYREM (500 MILLIGRAM/MILLILITERS, SOLUTION) (SODIUM OXYBATE) [Suspect]
     Indication: SLEEP DISORDER
     Dosage: 6 GM (3 GM, 2 IN 1 D), ORAL
     Route: 048
     Dates: start: 20070509
  2. XYREM (500 MILLIGRAM/MILLILITERS, SOLUTION) (SODIUM OXYBATE) [Suspect]
     Indication: FIBROMYALGIA
     Dosage: 6 GM (3 GM, 2 IN 1 D), ORAL
     Route: 048
     Dates: start: 20070509
  3. MODAFINIL [Suspect]
     Indication: SOMNOLENCE
  4. ARMOUR THYROID [Concomitant]
  5. QUETIAPINE FUMARATE [Concomitant]
  6. DULOXETINE HYDROCHLORIDE [Concomitant]
  7. ACETAMINOPHEN W/ TRAMADOL HYDROCHLORIDE [Concomitant]
  8. TAURINE [Concomitant]
  9. MAGNESIUM [Concomitant]

REACTIONS (5)
  - Blood pressure increased [None]
  - Psychomotor hyperactivity [None]
  - Agitation [None]
  - Urinary tract infection [None]
  - Feeling abnormal [None]
